FAERS Safety Report 5394983-3 (Version None)
Quarter: 2007Q3

REPORT INFORMATION
  Report Type: 
  Country: None (occurrence: None)
  Receive Date: 20070724
  Receipt Date: 20070713
  Transmission Date: 20080115
  Serious: Yes (Hospitalization)
  Sender: FDA-Public Use
  Company Number: PHHO2005US14386

PATIENT
  Age: 29 Year
  Sex: Female
  Weight: 65.1 kg

DRUGS (12)
  1. EXJADE [Suspect]
     Indication: BLOOD IRON INCREASED
     Dosage: 1250 MG, QD
     Route: 048
     Dates: start: 20051216, end: 20060523
  2. EXJADE [Suspect]
     Dosage: NO TREATMENT
     Dates: start: 20060524, end: 20060531
  3. EXJADE [Suspect]
     Dosage: 1250 MG, QD
     Route: 048
     Dates: start: 20060601, end: 20060915
  4. EXJADE [Suspect]
     Dosage: 1375 MG, QD
     Route: 048
     Dates: end: 20070421
  5. EXJADE [Suspect]
     Dosage: NO TREATMENT
  6. EXJADE [Suspect]
     Dosage: 1250 MG, QD
     Route: 048
  7. DESFERAL [Suspect]
     Indication: BLOOD IRON INCREASED
     Dosage: NO TREATMENT
     Dates: start: 20051216, end: 20060915
  8. DESFERAL [Suspect]
     Dosage: 2200 MG, QD
     Route: 058
     Dates: start: 20050902, end: 20050907
  9. DESFERAL [Suspect]
     Dosage: NO TREATMENT
  10. DESFERAL [Suspect]
     Dosage: 2200 MG DAILY
     Route: 058
     Dates: end: 20051022
  11. DESFERAL [Suspect]
     Dosage: NO TREATMENT
     Dates: start: 20060916, end: 20061004
  12. DESFERAL [Suspect]
     Dosage: 1375 MG, QD
     Route: 048
     Dates: start: 20061005, end: 20070616

REACTIONS (31)
  - ABDOMINAL PAIN [None]
  - ADDISON'S DISEASE [None]
  - ARTHRALGIA [None]
  - BACK PAIN [None]
  - CELLULITIS [None]
  - CHEST PAIN [None]
  - CONCOMITANT DISEASE PROGRESSION [None]
  - CONSTIPATION [None]
  - DEHYDRATION [None]
  - DIARRHOEA [None]
  - DIZZINESS [None]
  - ESCHERICHIA URINARY TRACT INFECTION [None]
  - GASTROENTERITIS VIRAL [None]
  - HEADACHE [None]
  - INJECTION SITE ERYTHEMA [None]
  - INJECTION SITE PAIN [None]
  - INJECTION SITE WARMTH [None]
  - LOSS OF CONSCIOUSNESS [None]
  - MENTAL STATUS CHANGES [None]
  - MUSCULOSKELETAL PAIN [None]
  - MYALGIA [None]
  - NAUSEA [None]
  - OXYGEN SATURATION DECREASED [None]
  - PAIN [None]
  - PAIN IN EXTREMITY [None]
  - PNEUMONIA [None]
  - PNEUMONIA ASPIRATION [None]
  - PYREXIA [None]
  - SICKLE CELL ANAEMIA WITH CRISIS [None]
  - VOMITING [None]
  - VULVOVAGINAL MYCOTIC INFECTION [None]
